FAERS Safety Report 5657358-5 (Version None)
Quarter: 2008Q1

REPORT INFORMATION
  Report Type: 
  Country: None (occurrence: None)
  Receive Date: 20080310
  Receipt Date: 20080304
  Transmission Date: 20080703
  Serious: Yes (Other)
  Sender: FDA-Public Use
  Company Number: US-GENENTECH-256939

PATIENT
  Age: 13 Year
  Sex: Female

DRUGS (4)
  1. XOLAIR [Suspect]
     Indication: ASTHMA
     Dosage: 300 MG, UNK
     Route: 030
     Dates: start: 20080123
  2. XOLAIR [Suspect]
     Dosage: 150 MG, UNK
     Route: 030
     Dates: start: 20080227
  3. IMMUNOTHERAPY (ANTIGEN UNKNOWN) [Concomitant]
     Indication: DRUG USE FOR UNKNOWN INDICATION
  4. PROAIR (UNITED STATES) [Concomitant]
     Indication: ASTHMA
     Dosage: 2 PUFF, PRN

REACTIONS (2)
  - ANAPHYLACTIC REACTION [None]
  - HYPERSENSITIVITY [None]
